FAERS Safety Report 4307737-3 (Version None)
Quarter: 2004Q1

REPORT INFORMATION
  Report Type: 
  Country: None (occurrence: None)
  Receive Date: 20040227
  Receipt Date: 20040227
  Transmission Date: 20041129
  Serious: Yes (Hospitalization)
  Sender: FDA-Public Use
  Company Number: None

PATIENT
  Sex: Female
  Weight: 86.1 kg

DRUGS (5)
  1. HERCEPTIN [Suspect]
     Indication: BREAST CANCER
     Dosage: 480 MG IV OVER 96 MIN EVERY 3 WEEKS
     Route: 042
     Dates: start: 20030315
  2. HERCEPTIN [Suspect]
     Indication: BREAST CANCER
     Dosage: 480 MG IV OVER 96 MIN EVERY 3 WEEKS
     Route: 042
     Dates: start: 20030905
  3. HERCEPTIN [Suspect]
     Indication: BREAST CANCER
     Dosage: 480 MG IV OVER 96 MIN EVERY 3 WEEKS
     Route: 042
     Dates: start: 20030926
  4. HERCEPTIN [Suspect]
     Indication: BREAST CANCER
     Dosage: 480 MG IV OVER 96 MIN EVERY 3 WEEKS
     Route: 042
     Dates: start: 20031017
  5. HERCEPTIN [Suspect]
     Indication: BREAST CANCER
     Dosage: 480 MG IV OVER 96 MIN EVERY 3 WEEKS
     Route: 042
     Dates: start: 20031114

REACTIONS (6)
  - ALPHA 1 FOETOPROTEIN AMNIOTIC FLUID INCREASED [None]
  - BREECH DELIVERY [None]
  - CAESAREAN SECTION [None]
  - DRUG EXPOSURE DURING PREGNANCY [None]
  - OLIGOHYDRAMNIOS [None]
  - PREMATURE BABY [None]
